FAERS Safety Report 7620409-2 (Version None)
Quarter: 2011Q3

REPORT INFORMATION
  Report Type: 
  Country: None (occurrence: None)
  Receive Date: 20110719
  Receipt Date: 20110712
  Transmission Date: 20111222
  Serious: No
  Sender: FDA-Public Use
  Company Number: PHHY2011US54192

PATIENT
  Sex: Female
  Weight: 90.612 kg

DRUGS (1)
  1. TASIGNA [Suspect]
     Route: 048

REACTIONS (1)
  - MATERNAL EXPOSURE DURING PREGNANCY [None]
